FAERS Safety Report 6934544-5 (Version None)
Quarter: 2010Q3

REPORT INFORMATION
  Report Type: 
  Country: None (occurrence: None)
  Receive Date: 20100820
  Receipt Date: 20100813
  Transmission Date: 20110219
  Serious: Yes (Life-Threatening, Hospitalization, Other)
  Sender: FDA-Public Use
  Company Number: DE-AMGEN-QUU426805

PATIENT
  Sex: Female
  Weight: 62 kg

DRUGS (6)
  1. NPLATE [Suspect]
     Indication: IDIOPATHIC THROMBOCYTOPENIC PURPURA
     Route: 058
     Dates: start: 20100511, end: 20100629
  2. ACTONEL [Concomitant]
     Indication: OSTEOPOROSIS
  3. PREDNISOLONE [Concomitant]
     Indication: RHEUMATOID ARTHRITIS
     Route: 048
     Dates: end: 20100726
  4. PANTOPRAZOLE [Concomitant]
     Route: 048
  5. RAMIPRIL [Concomitant]
     Route: 048
  6. IDEOS [Concomitant]
     Route: 048

REACTIONS (4)
  - ACUTE LEUKAEMIA [None]
  - ANAEMIA [None]
  - BONE MARROW RETICULIN FIBROSIS [None]
  - THROMBOCYTOPENIA [None]
